FAERS Safety Report 22297550 (Version 2)
Quarter: 2023Q2

REPORT INFORMATION
  Report Type: Spontaneous
  Country: US (occurrence: US)
  Receive Date: 20230509
  Receipt Date: 20230510
  Transmission Date: 20230721
  Serious: Yes (Other)
  Sender: FDA-Public Use
  Company Number: US-BoehringerIngelheim-2023-BI-236358

PATIENT
  Sex: Female

DRUGS (1)
  1. PRADAXA [Suspect]
     Active Substance: DABIGATRAN ETEXILATE MESYLATE
     Indication: Blood viscosity increased
     Dates: start: 2015

REACTIONS (3)
  - Cerebrovascular accident [Unknown]
  - Cor pulmonale [Unknown]
  - Arterial occlusive disease [Unknown]
